FAERS Safety Report 5089909-6 (Version None)
Quarter: 2006Q3

REPORT INFORMATION
  Report Type: 
  Country: None (occurrence: None)
  Receive Date: 20060731
  Receipt Date: 20060426
  Transmission Date: 20061208
  Serious: Yes (Other)
  Sender: FDA-Public Use
  Company Number: 200611716BWH

PATIENT
  Age: 52 Year
  Sex: Female

DRUGS (2)
  1. AVELOX [Suspect]
     Indication: SINUSITIS
     Dosage: ORAL
     Route: 048
     Dates: start: 20060315
  2. ZYRTEC [Concomitant]

REACTIONS (9)
  - ANAPHYLACTIC REACTION [None]
  - ANXIETY [None]
  - APHASIA [None]
  - FEELING ABNORMAL [None]
  - GENERALISED OEDEMA [None]
  - OEDEMA PERIPHERAL [None]
  - PRURITUS GENERALISED [None]
  - RASH [None]
  - TREMOR [None]
